FAERS Safety Report 19397404 (Version 1)
Quarter: 2021Q2

REPORT INFORMATION
  Report Type: Other
  Country: CA (occurrence: CA)
  Receive Date: 20210609
  Receipt Date: 20210609
  Transmission Date: 20210717
  Serious: Yes (Hospitalization, Other)
  Sender: FDA-Public Use
  Company Number: CA-ROCHE-2626318

PATIENT
  Age: 80 Year
  Sex: Male

DRUGS (4)
  1. ZELBORAF [Suspect]
     Active Substance: VEMURAFENIB
     Indication: HAIRY CELL LEUKAEMIA
     Route: 048
     Dates: start: 20200722
  2. RITUXAN [Suspect]
     Active Substance: RITUXIMAB
     Indication: HAIRY CELL LEUKAEMIA
     Route: 042
     Dates: start: 2014
  3. COVID?19 VACCINE NOS. [Suspect]
     Active Substance: COVID-19 VACCINE NOS
     Indication: COVID-19
     Route: 065
  4. CLADRIBINE. [Concomitant]
     Active Substance: CLADRIBINE

REACTIONS (18)
  - Benign prostatic hyperplasia [Recovered/Resolved]
  - Asthenia [Unknown]
  - Injection site pain [Recovered/Resolved]
  - Liver palpable [Unknown]
  - Anaemia [Unknown]
  - Agranulocytosis [Unknown]
  - Fall [Unknown]
  - Gastrointestinal lymphoma [Unknown]
  - Pancytopenia [Unknown]
  - Fatigue [Unknown]
  - Dyspnoea exertional [Unknown]
  - Pruritus [Unknown]
  - BRAF gene mutation [Unknown]
  - Femur fracture [Unknown]
  - Off label use [Unknown]
  - Rash [Recovered/Resolved]
  - Overgrowth bacterial [Unknown]
  - Osteoporosis [Unknown]

NARRATIVE: CASE EVENT DATE: 20200610
